FAERS Safety Report 10045274 (Version 1)
Quarter: 2014Q1

REPORT INFORMATION
  Report Type: Spontaneous
  Country: US (occurrence: US)
  Receive Date: 20140328
  Receipt Date: 20140328
  Transmission Date: 20141002
  Serious: No
  Sender: FDA-Public Use
  Company Number: US-JHP PHARMACEUTICALS, LLC-JHP201300288

PATIENT
  Sex: 0

DRUGS (1)
  1. KETALAR [Suspect]
     Indication: INDUCTION OF ANAESTHESIA
     Dosage: UNK
     Dates: start: 201304, end: 201304

REACTIONS (1)
  - Drug ineffective [Recovered/Resolved]
